FAERS Safety Report 14613118 (Version 1)
Quarter: 2018Q1

REPORT INFORMATION
  Report Type: Spontaneous
  Country: US (occurrence: US)
  Receive Date: 20180308
  Receipt Date: 20180308
  Transmission Date: 20180509
  Serious: Yes (Hospitalization)
  Sender: FDA-Public Use
  Company Number: None

PATIENT
  Age: 41 Year
  Sex: Female

DRUGS (6)
  1. HUMIRA [Suspect]
     Active Substance: ADALIMUMAB
     Indication: PSORIASIS
     Route: 058
     Dates: start: 20150527
  2. IRON [Concomitant]
     Active Substance: IRON
  3. VITAMIN D [Concomitant]
     Active Substance: CHOLECALCIFEROL
  4. LISINOPRIL. [Concomitant]
     Active Substance: LISINOPRIL
  5. LOTEMAX [Concomitant]
     Active Substance: LOTEPREDNOL ETABONATE
  6. GLIMEPIRIDE. [Concomitant]
     Active Substance: GLIMEPIRIDE

REACTIONS (2)
  - Ovarian operation [None]
  - Tumour excision [None]

NARRATIVE: CASE EVENT DATE: 20180221
